FAERS Safety Report 7811396-2 (Version None)
Quarter: 2011Q4

REPORT INFORMATION
  Report Type: 
  Country: None (occurrence: None)
  Receive Date: 20111013
  Receipt Date: 20111005
  Transmission Date: 20120403
  Serious: Yes (Other)
  Sender: FDA-Public Use
  Company Number: CA-PFIZER INC-2011237885

PATIENT
  Age: 68 Year
  Sex: Male

DRUGS (3)
  1. XALATAN [Suspect]
     Indication: GLAUCOMA
     Dosage: 1 DROP IN BOTH EYES, 1X/DAY
     Route: 047
     Dates: start: 20110101
  2. PREDNISONE [Concomitant]
     Indication: PRURITUS
  3. PREDNISONE [Concomitant]
     Indication: SWELLING
     Dosage: 1 GTT, 3X/DAY

REACTIONS (1)
  - EYE LASER SURGERY [None]
